FAERS Safety Report 7559287-9 (Version None)
Quarter: 2011Q2

REPORT INFORMATION
  Report Type: 
  Country: None (occurrence: None)
  Receive Date: 20110617
  Receipt Date: 20110617
  Transmission Date: 20111010
  Serious: No
  Sender: FDA-Public Use
  Company Number: None

PATIENT
  Age: 35 Year
  Sex: Female

DRUGS (2)
  1. KEFLEX [Suspect]
     Dates: start: 20100219, end: 20100221
  2. ANCEF [Suspect]
     Dates: start: 20100218, end: 20100218

REACTIONS (15)
  - JAUNDICE [None]
  - MALAISE [None]
  - ASPARTATE AMINOTRANSFERASE INCREASED [None]
  - FAECES PALE [None]
  - ABDOMINAL PAIN [None]
  - ABDOMINAL PAIN UPPER [None]
  - PRURITUS GENERALISED [None]
  - DECREASED APPETITE [None]
  - LIVER INJURY [None]
  - PYREXIA [None]
  - BLOOD ALKALINE PHOSPHATASE INCREASED [None]
  - MYALGIA [None]
  - CHROMATURIA [None]
  - BLOOD BILIRUBIN INCREASED [None]
  - ALANINE AMINOTRANSFERASE INCREASED [None]
